FAERS Safety Report 8925819 (Version 1)
Quarter: 2012Q4

REPORT INFORMATION
  Report Type: 
  Country: US (occurrence: US)
  Receive Date: 20121126
  Receipt Date: 20121126
  Transmission Date: 20130627
  Serious: No
  Sender: FDA-Public Use
  Company Number: US-009507513-1211USA008113

PATIENT

DRUGS (2)
  1. JANUMET [Suspect]
     Dosage: 50/500 mg, bid
  2. METFORMIN [Suspect]

REACTIONS (2)
  - Drug dose omission [Unknown]
  - Drug ineffective [Unknown]
